FAERS Safety Report 16398189 (Version 1)
Quarter: 2019Q3

REPORT INFORMATION
  Report Type: Spontaneous
  Country: US (occurrence: US)
  Receive Date: 20190605
  Receipt Date: 20190605
  Transmission Date: 20191004
  Serious: Yes (Congenital Anomaly, Other)
  Sender: FDA-Public Use
  Company Number: None

PATIENT
  Age: 60 Year
  Sex: Male
  Weight: 126.45 kg

DRUGS (4)
  1. ROSUVASTATIN 5MG [Concomitant]
     Active Substance: ROSUVASTATIN
     Dates: start: 20180525
  2. AMLODIPINE [Concomitant]
     Active Substance: AMLODIPINE BESYLATE
     Dates: start: 20190123
  3. IRBESARTAN 300MG [Concomitant]
     Active Substance: IRBESARTAN
     Dates: start: 20181217
  4. SYNJARDY [Suspect]
     Active Substance: EMPAGLIFLOZIN\METFORMIN HYDROCHLORIDE
     Indication: TYPE 2 DIABETES MELLITUS
     Route: 048
     Dates: start: 20170606, end: 20181126

REACTIONS (2)
  - Burning sensation [None]
  - Arthralgia [None]

NARRATIVE: CASE EVENT DATE: 20181126
